FAERS Safety Report 18302600 (Version 1)
Quarter: 2020Q3

REPORT INFORMATION
  Report Type: Spontaneous
  Country: US (occurrence: US)
  Receive Date: 20200923
  Receipt Date: 20200923
  Transmission Date: 20201103
  Serious: No
  Sender: FDA-Public Use
  Company Number: US-MYLANLABS-2020M1078961

PATIENT
  Sex: Female
  Weight: 95 kg

DRUGS (10)
  1. HYDROCODONE BITARTRATE. [Concomitant]
     Active Substance: HYDROCODONE BITARTRATE
     Dosage: UNK
  2. RYZOLT [Concomitant]
     Active Substance: TRAMADOL HYDROCHLORIDE
     Dosage: UNK
  3. DILAUDID [Concomitant]
     Active Substance: HYDROMORPHONE HYDROCHLORIDE
     Dosage: UNK
  4. SOMA [Suspect]
     Active Substance: CARISOPRODOL
     Indication: PAIN MANAGEMENT
     Dosage: UNK
  5. HYDROCODONE BITARTRATE AND ACETAMINOPHEN [Suspect]
     Active Substance: ACETAMINOPHEN\HYDROCODONE BITARTRATE
     Indication: PAIN MANAGEMENT
     Dosage: UNK
  6. OXYCONTIN [Concomitant]
     Active Substance: OXYCODONE HYDROCHLORIDE
     Indication: PAIN MANAGEMENT
     Dosage: UNK
  7. OXYCODONE HYDROCHLORIDE. [Concomitant]
     Active Substance: OXYCODONE HYDROCHLORIDE
     Dosage: UNK
  8. OXYCONTIN [Concomitant]
     Active Substance: OXYCODONE HYDROCHLORIDE
     Indication: PAIN MANAGEMENT
     Dosage: UNK
  9. TRAMADOL. [Concomitant]
     Active Substance: TRAMADOL
     Dosage: UNK
  10. MORPHINE SULFATE. [Concomitant]
     Active Substance: MORPHINE SULFATE
     Dosage: UNK

REACTIONS (1)
  - Drug ineffective [Unknown]
